FAERS Safety Report 7057738-X (Version None)
Quarter: 2010Q4

REPORT INFORMATION
  Report Type: 
  Country: None (occurrence: None)
  Receive Date: 20101022
  Receipt Date: 20101018
  Transmission Date: 20110411
  Serious: Yes (Hospitalization, Other)
  Sender: FDA-Public Use
  Company Number: CA-PFIZER INC-2010131960

PATIENT
  Age: 62 Year
  Sex: Male

DRUGS (4)
  1. NORVASC [Suspect]
     Dosage: 20 MG, 1X/DAY
     Dates: start: 20080101, end: 20090101
  2. NORVASC [Suspect]
     Dosage: 5 MG, 2X/DAY
     Dates: start: 20090101
  3. RAMIPRIL [Concomitant]
     Dosage: 20 MG, UNK
  4. ASPIRIN [Concomitant]
     Dosage: 81 MG, UNK

REACTIONS (5)
  - ARTHRALGIA [None]
  - CORONARY ARTERY BYPASS [None]
  - DIZZINESS [None]
  - NECK PAIN [None]
  - PARAESTHESIA [None]
